FAERS Safety Report 14196307 (Version 2)
Quarter: 2017Q4

REPORT INFORMATION
  Report Type: Spontaneous
  Country: FR (occurrence: FR)
  Receive Date: 20171116
  Receipt Date: 20171229
  Transmission Date: 20180321
  Serious: Yes (Other)
  Sender: FDA-Public Use
  Company Number: FR-JNJFOC-20171115798

PATIENT
  Age: 7 Decade
  Sex: Male
  Weight: 57 kg

DRUGS (1)
  1. IMBRUVICA [Suspect]
     Active Substance: IBRUTINIB
     Indication: PRODUCT USED FOR UNKNOWN INDICATION
     Route: 048
     Dates: start: 20170509

REACTIONS (2)
  - Haemorrhage urinary tract [Recovered/Resolved]
  - Benign prostatic hyperplasia [Unknown]

NARRATIVE: CASE EVENT DATE: 20171118
